FAERS Safety Report 7469088-8 (Version None)
Quarter: 2011Q2

REPORT INFORMATION
  Report Type: 
  Country: None (occurrence: None)
  Receive Date: 20110510
  Receipt Date: 20110504
  Transmission Date: 20111010
  Serious: Yes (Hospitalization)
  Sender: FDA-Public Use
  Company Number: NL-AMGEN-NLDSP2011023244

PATIENT
  Age: 57 Year
  Sex: Female

DRUGS (14)
  1. PANTOPRAZOL                        /01263202/ [Concomitant]
  2. ATENOLOL ACCORD [Concomitant]
  3. PRIMPERAN                          /00041901/ [Concomitant]
  4. DEXAMETHASONE [Concomitant]
  5. BRICANYL [Concomitant]
  6. ACETYLSALICYL.ACID W/CAFFE./CODE. [Concomitant]
  7. PLAQUENIL [Concomitant]
  8. NEULASTA [Suspect]
     Indication: CHEMOTHERAPY
     Dosage: 6 MG, Q3WK
     Route: 058
     Dates: start: 20110406
  9. FLUCONAZOLE [Concomitant]
  10. HYDROCHLOROTHIAZIDE [Concomitant]
  11. CIPROFLOXACIN HCL [Concomitant]
  12. PERSANTIN [Concomitant]
  13. EMEND                              /01627301/ [Concomitant]
  14. INEGY [Concomitant]

REACTIONS (4)
  - FUNGAL INFECTION [None]
  - WHITE BLOOD CELL COUNT DECREASED [None]
  - DEHYDRATION [None]
  - BONE PAIN [None]
